FAERS Safety Report 8552772-2 (Version None)
Quarter: 2012Q3

REPORT INFORMATION
  Report Type: 
  Country: None (occurrence: None)
  Receive Date: 20120731
  Receipt Date: 20120725
  Transmission Date: 20120928
  Serious: Yes (Other)
  Sender: FDA-Public Use
  Company Number: PHHY2012DE059421

PATIENT
  Sex: Male
  Weight: 100 kg

DRUGS (3)
  1. RAMIPRIL [Concomitant]
     Indication: AORTIC VALVE REPLACEMENT
     Dosage: 2.5 MG, QD
     Route: 048
     Dates: start: 20100301
  2. MARCUMAR [Concomitant]
     Indication: AORTIC VALVE REPLACEMENT
     Dosage: 3 MG, QD
     Route: 048
     Dates: start: 20091201
  3. CLOZAPINE [Suspect]
     Indication: SCHIZOPHRENIA
     Dosage: 200 MG, QD
     Route: 048
     Dates: start: 20110721

REACTIONS (3)
  - BLOOD CREATINE PHOSPHOKINASE INCREASED [None]
  - BLOOD LACTATE DEHYDROGENASE INCREASED [None]
  - HAEMOLYSIS [None]
